FAERS Safety Report 25050843 (Version 1)
Quarter: 2025Q1

REPORT INFORMATION
  Report Type: Report from Study
  Country: US (occurrence: US)
  Receive Date: 20250307
  Receipt Date: 20250307
  Transmission Date: 20250409
  Serious: Yes (Hospitalization)
  Sender: MYLAN
  Company Number: US-MYLANLABS-2025M1012578

PATIENT
  Age: 62 Year
  Sex: Female

DRUGS (4)
  1. TYRVAYA [Suspect]
     Active Substance: VARENICLINE TARTRATE
     Indication: Dry eye
  2. TYRVAYA [Suspect]
     Active Substance: VARENICLINE TARTRATE
     Route: 045
  3. TYRVAYA [Suspect]
     Active Substance: VARENICLINE TARTRATE
     Route: 045
  4. TYRVAYA [Suspect]
     Active Substance: VARENICLINE TARTRATE

REACTIONS (5)
  - Arrhythmia [Recovering/Resolving]
  - Ear infection [Recovering/Resolving]
  - Heart rate irregular [Recovering/Resolving]
  - Sinus disorder [Recovering/Resolving]
  - Nasal discomfort [Not Recovered/Not Resolved]

NARRATIVE: CASE EVENT DATE: 20241201
